FAERS Safety Report 14749504 (Version 2)
Quarter: 2018Q3

REPORT INFORMATION
  Report Type: Spontaneous
  Country: US (occurrence: US)
  Receive Date: 20180411
  Receipt Date: 20180726
  Transmission Date: 20181010
  Serious: Yes (Other)
  Sender: FDA-Public Use
  Company Number: US-INDIVIOR LIMITED-INDV-110131-2018

PATIENT
  Age: 45 Year
  Sex: Male

DRUGS (4)
  1. LORTAB [Concomitant]
     Active Substance: ACETAMINOPHEN\HYDROCODONE BITARTRATE
     Indication: PRODUCT USED FOR UNKNOWN INDICATION
     Dosage: 10 MG THREE OR FOUR TIMES A DAY
     Route: 065
  2. SUBOXONE [Suspect]
     Active Substance: BUPRENORPHINE HYDROCHLORIDE\NALOXONE HYDROCHLORIDE
     Indication: DRUG DEPENDENCE
     Dosage: 8 MG, TID
     Route: 065
     Dates: start: 2008
  3. SUBOXONE [Suspect]
     Active Substance: BUPRENORPHINE HYDROCHLORIDE\NALOXONE HYDROCHLORIDE
     Dosage: 8 MG, BID
     Route: 065
  4. SUBOXONE [Suspect]
     Active Substance: BUPRENORPHINE HYDROCHLORIDE\NALOXONE HYDROCHLORIDE
     Dosage: UNK
     Route: 065

REACTIONS (10)
  - Therapeutic product ineffective [Unknown]
  - Energy increased [Unknown]
  - Cardiac disorder [Unknown]
  - Tremor [Unknown]
  - Speech disorder [Unknown]
  - Procedural pain [Not Recovered/Not Resolved]
  - Inappropriate schedule of drug administration [Unknown]
  - Drug dependence [Unknown]
  - Therapeutic response unexpected [Unknown]
  - Intentional underdose [Unknown]

NARRATIVE: CASE EVENT DATE: 2008
